FAERS Safety Report 9328279 (Version 1)
Quarter: 2013Q2

REPORT INFORMATION
  Report Type: Spontaneous
  Country: CA (occurrence: CA)
  Receive Date: 20130604
  Receipt Date: 20130604
  Transmission Date: 20140414
  Serious: Yes (Other)
  Sender: FDA-Public Use
  Company Number: CA-INCYTE CORPORATION-2013IN001053

PATIENT
  Age: 82 Year
  Sex: Female

DRUGS (4)
  1. JAKAVI [Suspect]
     Dosage: 3 DF, UNK
     Route: 048
  2. JAKAVI [Suspect]
     Dosage: 6 DF, QD (01 EVERY 01 DAYS)
  3. JAKAVI [Suspect]
     Dosage: 5 MG, QD  (1 EVERY 1 DAY)
     Route: 048
  4. PANTOLOC [Suspect]

REACTIONS (5)
  - Anaemia [Unknown]
  - Constipation [Unknown]
  - Diarrhoea [Unknown]
  - Dyspepsia [Unknown]
  - Herpes zoster [Unknown]
